FAERS Safety Report 25725694 (Version 1)
Quarter: 2025Q3

REPORT INFORMATION
  Report Type: Spontaneous
  Country: US (occurrence: None)
  Receive Date: 20250823
  Receipt Date: 20250823
  Transmission Date: 20251021
  Serious: Yes (unspecified)
  Sender: FDA-CTU
  Company Number: None

PATIENT
  Age: 39 Year
  Sex: Female
  Weight: 56.25 kg

DRUGS (1)
  1. AJOVY [Suspect]
     Active Substance: FREMANEZUMAB-VFRM
     Indication: Migraine
     Dosage: FREQUENCY : MONTHLY;?
     Route: 058
     Dates: start: 20230101

REACTIONS (17)
  - Peripheral coldness [None]
  - Constipation [None]
  - Withdrawal syndrome [None]
  - Dizziness [None]
  - Syncope [None]
  - Influenza like illness [None]
  - Piloerection [None]
  - Dysphagia [None]
  - Nausea [None]
  - Fatigue [None]
  - Asthenopia [None]
  - Burning sensation [None]
  - Dyspnoea [None]
  - Diarrhoea [None]
  - Photophobia [None]
  - Bone pain [None]
  - Arthralgia [None]

NARRATIVE: CASE EVENT DATE: 20250213
